FAERS Safety Report 8662147 (Version 4)
Quarter: 2013Q2

REPORT INFORMATION
  Report Type: Report from Study
  Country: US (occurrence: US)
  Receive Date: 20120712
  Receipt Date: 20130403
  Transmission Date: 20140414
  Serious: Yes (Hospitalization)
  Sender: FDA-Public Use
  Company Number: US-ROCHE-1084964

PATIENT
  Age: 58 Year
  Sex: Male
  Weight: 110.32 kg

DRUGS (5)
  1. CAPECITABINE [Suspect]
     Indication: COLON CANCER
     Route: 048
     Dates: start: 20120606, end: 20120704
  2. CAPECITABINE [Suspect]
     Dosage: 2000 MG IN MORNING AND 1500 MG IN EVENING
     Route: 048
     Dates: start: 20120711, end: 201301
  3. CAPECITABINE [Suspect]
     Dosage: 2500 MG/3000 MG EVERY AM AND EVERY PM
     Route: 048
     Dates: start: 20120601
  4. SYNTHROID [Concomitant]
     Indication: THYROID DISORDER
     Route: 048
     Dates: start: 19970101
  5. LISINOPRIL [Concomitant]
     Indication: BLOOD PRESSURE ABNORMAL
     Dosage: UNKNOWN DOSE
     Route: 048
     Dates: start: 20040101, end: 20120604

REACTIONS (8)
  - Vocal cord polypectomy [Unknown]
  - Oral pain [Not Recovered/Not Resolved]
  - Insomnia [Not Recovered/Not Resolved]
  - Diarrhoea [Unknown]
  - Dysgeusia [Not Recovered/Not Resolved]
  - Hyperaesthesia [Not Recovered/Not Resolved]
  - Hyperaesthesia [Not Recovered/Not Resolved]
  - Disease progression [Not Recovered/Not Resolved]
